FAERS Safety Report 6929708-0 (Version None)
Quarter: 2010Q3

REPORT INFORMATION
  Report Type: 
  Country: None (occurrence: None)
  Receive Date: 20100818
  Receipt Date: 20100810
  Transmission Date: 20110219
  Serious: Yes (Death)
  Sender: FDA-Public Use
  Company Number: NL-SANOFI-AVENTIS-2010SA047140

PATIENT
  Age: 69 Year
  Sex: Male
  Weight: 70 kg

DRUGS (4)
  1. PLAVIX [Suspect]
     Indication: CEREBROVASCULAR ACCIDENT
     Route: 048
     Dates: start: 20100715, end: 20100720
  2. DIPHANTOINE Z [Suspect]
     Route: 048
     Dates: start: 20100530, end: 20100715
  3. ACETAMINOPHEN [Suspect]
     Indication: PYREXIA
     Route: 048
     Dates: start: 20100719, end: 20100722
  4. CLEMASTINE FUMARATE [Concomitant]
     Indication: PRODUCT USED FOR UNKNOWN INDICATION
     Route: 048
     Dates: start: 20100720, end: 20100722

REACTIONS (3)
  - ERYTHEMA [None]
  - HEPATIC FAILURE [None]
  - PYREXIA [None]
